FAERS Safety Report 13256070 (Version 1)
Quarter: 2017Q1

REPORT INFORMATION
  Report Type: Spontaneous
  Country: US (occurrence: US)
  Receive Date: 20170218
  Receipt Date: 20170218
  Transmission Date: 20170428
  Serious: Yes (Disabling)
  Sender: FDA-Public Use
  Company Number: None

PATIENT
  Age: 8 Year
  Sex: Male
  Weight: 20.7 kg

DRUGS (9)
  1. FOCILINXR /RITALIN 20 MG [Concomitant]
  2. BUSPORONE [Concomitant]
  3. VALIUM [Concomitant]
     Active Substance: DIAZEPAM
  4. MULTI VITAMIN [Concomitant]
     Active Substance: VITAMINS
  5. COLONIDINE [Concomitant]
  6. VITAMIN C [Concomitant]
     Active Substance: ASCORBIC ACID
  7. IRON [Concomitant]
     Active Substance: IRON
  8. PROZAC [Concomitant]
     Active Substance: FLUOXETINE HYDROCHLORIDE
  9. MIRALAX [Suspect]
     Active Substance: POLYETHYLENE GLYCOL 3350
     Indication: CONSTIPATION
     Dosage: ?          QUANTITY:14 OUNCE(S);?
     Route: 048

REACTIONS (2)
  - Autism [None]
  - Anxiety [None]

NARRATIVE: CASE EVENT DATE: 20081101
